FAERS Safety Report 8806514 (Version 3)
Quarter: 2015Q4

REPORT INFORMATION
  Report Type: Spontaneous
  Country: JP (occurrence: JP)
  Receive Date: 20120925
  Receipt Date: 20151224
  Transmission Date: 20160305
  Serious: Yes (Other)
  Sender: FDA-Public Use
  Company Number: JP-RANBAXY-2012R1-60018

PATIENT
  Age: 8 Year
  Sex: Male

DRUGS (1)
  1. ISOTRETINOIN [Suspect]
     Active Substance: ISOTRETINOIN
     Indication: NEUROBLASTOMA
     Dosage: 160 MG/M2, DAILY
     Route: 065

REACTIONS (3)
  - Stomatitis [Recovering/Resolving]
  - Erythema [Recovering/Resolving]
  - Bone marrow oedema [Unknown]
